FAERS Safety Report 6760785-6 (Version None)
Quarter: 2010Q2

REPORT INFORMATION
  Report Type: 
  Country: None (occurrence: None)
  Receive Date: 20100608
  Receipt Date: 20100531
  Transmission Date: 20101027
  Serious: Yes (Death, Hospitalization)
  Sender: FDA-Public Use
  Company Number: CL-MERCK-1006CHL00001

PATIENT
  Age: 82 Year
  Sex: Male

DRUGS (1)
  1. JANUMET [Suspect]
     Route: 065

REACTIONS (4)
  - CARDIAC FAILURE [None]
  - HYPERTENSION [None]
  - METABOLIC ACIDOSIS [None]
  - RENAL FAILURE ACUTE [None]
